FAERS Safety Report 5367915-1 (Version None)
Quarter: 2007Q2

REPORT INFORMATION
  Report Type: 
  Country: None (occurrence: None)
  Receive Date: 20070622
  Receipt Date: 20070613
  Transmission Date: 20071010
  Serious: Yes (Other)
  Sender: FDA-Public Use
  Company Number: CL-PFIZER INC-2007040422

PATIENT
  Age: 53 Year
  Sex: Male
  Weight: 80 kg

DRUGS (2)
  1. PREGABALIN [Suspect]
     Indication: PAIN
     Route: 048
     Dates: start: 20070515, end: 20070501
  2. DICLOFENAC [Concomitant]

REACTIONS (5)
  - CONSTIPATION [None]
  - DRY MOUTH [None]
  - FEELING ABNORMAL [None]
  - FEELING DRUNK [None]
  - TACHYCARDIA [None]
